FAERS Safety Report 8607238-8 (Version None)
Quarter: 2012Q3

REPORT INFORMATION
  Report Type: 
  Country: None (occurrence: None)
  Receive Date: 20120821
  Receipt Date: 20120814
  Transmission Date: 20120928
  Serious: No
  Sender: FDA-Public Use
  Company Number: US-BIOGENIDEC-2012BI031579

PATIENT
  Age: 66 Year
  Sex: Female

DRUGS (2)
  1. AVONEX [Suspect]
     Indication: MULTIPLE SCLEROSIS
     Route: 030
     Dates: start: 19990101, end: 20100801
  2. AVONEX [Suspect]
     Route: 030
     Dates: start: 20120729, end: 20120812

REACTIONS (4)
  - DISORIENTATION [None]
  - VISUAL ACUITY REDUCED [None]
  - HEADACHE [None]
  - PYREXIA [None]
